FAERS Safety Report 20628343 (Version 1)
Quarter: 2022Q1

REPORT INFORMATION
  Report Type: Spontaneous
  Country: US (occurrence: US)
  Receive Date: 20220323
  Receipt Date: 20220323
  Transmission Date: 20220423
  Serious: No
  Sender: FDA-Public Use
  Company Number: US-MYOVANT SCIENCES GMBH-2022MYSCI0100666

PATIENT
  Age: 36 Year
  Sex: Female

DRUGS (2)
  1. MYFEMBREE [Suspect]
     Active Substance: ESTRADIOL HEMIHYDRATE\NORETHINDRONE ACETATE\RELUGOLIX
     Indication: Uterine leiomyoma
     Dosage: 1 TAB, ONE TIME DOSE
     Route: 048
     Dates: start: 202201, end: 202201
  2. PRENATAL VITAMINS                  /02014401/ [Concomitant]
     Indication: Supplementation therapy
     Dosage: 1 TAB, QD
     Route: 048

REACTIONS (1)
  - Maternal exposure during breast feeding [Unknown]

NARRATIVE: CASE EVENT DATE: 20220101
